FAERS Safety Report 11880381 (Version 1)
Quarter: 2015Q4

REPORT INFORMATION
  Report Type: Spontaneous
  Country: US (occurrence: US)
  Receive Date: 20151230
  Receipt Date: 20151230
  Transmission Date: 20160305
  Serious: Yes (Other)
  Sender: FDA-Public Use
  Company Number: US-ALEXION PHARMACEUTICALS INC-A201505329

PATIENT
  Age: 5 Year
  Sex: Male

DRUGS (2)
  1. PREDNISONE. [Concomitant]
     Active Substance: PREDNISONE
     Indication: PRODUCT USED FOR UNKNOWN INDICATION
     Dosage: UNK
     Route: 065
  2. SOLIRIS [Suspect]
     Active Substance: ECULIZUMAB
     Indication: HAEMOLYTIC URAEMIC SYNDROME
     Dosage: UNK
     Route: 042
     Dates: start: 201508

REACTIONS (8)
  - Complement factor increased [Unknown]
  - Graft versus host disease [Unknown]
  - Posterior reversible encephalopathy syndrome [Unknown]
  - Pancytopenia [Unknown]
  - Haptoglobin decreased [Unknown]
  - Gastrointestinal haemorrhage [Unknown]
  - Pericarditis [Unknown]
  - Human herpesvirus 6 infection [Unknown]
